FAERS Safety Report 13096886 (Version 4)
Quarter: 2017Q2

REPORT INFORMATION
  Report Type: Spontaneous
  Country: US (occurrence: US)
  Receive Date: 20170109
  Receipt Date: 20170407
  Transmission Date: 20170830
  Serious: Yes (Other)
  Sender: FDA-Public Use
  Company Number: US-PFIZER INC-2017001325

PATIENT
  Sex: Female

DRUGS (2)
  1. XELJANZ [Suspect]
     Active Substance: TOFACITINIB CITRATE
     Dosage: 5 MG, 1X/DAY
     Route: 048
  2. XELJANZ [Suspect]
     Active Substance: TOFACITINIB CITRATE
     Dosage: 5 MG, 2X/DAY
     Route: 048

REACTIONS (12)
  - Bone pain [Unknown]
  - Pyrexia [Unknown]
  - Pain in extremity [Unknown]
  - Back pain [Unknown]
  - Sinusitis [Unknown]
  - Musculoskeletal pain [Unknown]
  - Arthralgia [Unknown]
  - Tendon pain [Unknown]
  - Joint swelling [Unknown]
  - Respiratory tract infection [Recovering/Resolving]
  - Cough [Unknown]
  - Muscle spasms [Unknown]
